FAERS Safety Report 9666058 (Version 1)
Quarter: 2013Q4

REPORT INFORMATION
  Report Type: Spontaneous
  Country: FI (occurrence: FI)
  Receive Date: 20131104
  Receipt Date: 20131104
  Transmission Date: 20140711
  Serious: Yes (Death, Other)
  Sender: FDA-Public Use
  Company Number: FI-PFIZER INC-2013309987

PATIENT
  Age: 85 Year
  Sex: Female

DRUGS (4)
  1. OXAZEPAM [Suspect]
     Dosage: UNK
  2. VENLAFAXINE HCL [Suspect]
     Dosage: UNK
  3. TEMAZEPAM [Suspect]
     Dosage: UNK
  4. CITALOPRAM [Suspect]
     Dosage: UNK

REACTIONS (8)
  - Cerebrovascular accident [Fatal]
  - Arteriosclerosis [Fatal]
  - Poisoning deliberate [Unknown]
  - Loss of consciousness [Unknown]
  - Coma [Unknown]
  - Vomiting [Unknown]
  - Pain [Unknown]
  - Physical assault [Unknown]
